FAERS Safety Report 6792848-3 (Version None)
Quarter: 2010Q2

REPORT INFORMATION
  Report Type: 
  Country: None (occurrence: None)
  Receive Date: 20100624
  Receipt Date: 20081005
  Transmission Date: 20101027
  Serious: No
  Sender: FDA-Public Use
  Company Number: US-PFIZER INC-2008083692

PATIENT
  Sex: Male
  Weight: 68.04 kg

DRUGS (1)
  1. HALCION [Suspect]
     Indication: INSOMNIA
     Dates: start: 20080901

REACTIONS (2)
  - DRUG WITHDRAWAL SYNDROME [None]
  - FEELING ABNORMAL [None]
